FAERS Safety Report 10478042 (Version 2)
Quarter: 2014Q3

REPORT INFORMATION
  Report Type: Spontaneous
  Country: US (occurrence: US)
  Receive Date: 20140926
  Receipt Date: 20140926
  Transmission Date: 20150326
  Serious: Yes (Hospitalization, Other)
  Sender: FDA-Public Use
  Company Number: US-BAUSCH-SYM-2014-23526

PATIENT
  Age: 67 Year
  Sex: Female

DRUGS (1)
  1. XENAZINE [Suspect]
     Active Substance: TETRABENAZINE
     Indication: COORDINATION ABNORMAL
     Route: 048
     Dates: start: 20110819

REACTIONS (3)
  - Off label use [Not Recovered/Not Resolved]
  - Gastritis [Unknown]
  - Urinary tract infection [Unknown]

NARRATIVE: CASE EVENT DATE: 20140915
